FAERS Safety Report 18619007 (Version 1)
Quarter: 2020Q4

REPORT INFORMATION
  Report Type: Spontaneous
  Country: US (occurrence: US)
  Receive Date: 20201215
  Receipt Date: 20201215
  Transmission Date: 20210114
  Serious: No
  Sender: FDA-Public Use
  Company Number: US-VERTEX PHARMACEUTICALS-2020-024373

PATIENT
  Sex: Male
  Weight: 27.21 kg

DRUGS (13)
  1. XOPENEX [Concomitant]
     Active Substance: LEVALBUTEROL HYDROCHLORIDE
     Dosage: 0.31MG/3ML VIAL-NEB
  2. SINGULAIR [Concomitant]
     Active Substance: MONTELUKAST SODIUM
     Dosage: 4 MG TAB CHEW
  3. ABILIFY [Concomitant]
     Active Substance: ARIPIPRAZOLE
     Dosage: TABLET
  4. ZYRTEC [Concomitant]
     Active Substance: CETIRIZINE HYDROCHLORIDE
     Dosage: TABLET
  5. MIRALAX [Concomitant]
     Active Substance: POLYETHYLENE GLYCOL 3350
     Dosage: 17G/DOSE POWDER
  6. PERTZYE [Concomitant]
     Active Substance: PANCRELIPASE AMYLASE\PANCRELIPASE LIPASE\PANCRELIPASE PROTEASE
     Dosage: 16K-57.5K CAPSULE DR
  7. ALBUTEROL SULFATE HFA [Concomitant]
     Active Substance: ALBUTEROL SULFATE
  8. TOBI PODHALER [Concomitant]
     Active Substance: TOBRAMYCIN
     Dosage: 300 MG/5ML AMPUL-NEB
  9. PULMOZYME [Concomitant]
     Active Substance: DORNASE ALFA
     Dosage: 1 MG/ML SOLUTION
  10. ADVAIR HFA [Concomitant]
     Active Substance: FLUTICASONE PROPIONATE\SALMETEROL XINAFOATE
     Dosage: 115-21MCG HFA AER AD
  11. CYPROHEPTADINE HCL [Concomitant]
     Active Substance: CYPROHEPTADINE HYDROCHLORIDE
     Dosage: TABLET
  12. SYMDEKO [Suspect]
     Active Substance: IVACAFTOR\TEZACAFTOR
     Indication: CYSTIC FIBROSIS
     Dosage: 50MG/75MG; 75MG, 1 WHITE TABLET IN THE MORNING AND 1 BLUE TABLET IN THE EVENING BY MOUTH
     Route: 048
     Dates: start: 201912
  13. HYPERSAL [Concomitant]
     Active Substance: SODIUM CHLORIDE
     Dosage: VIAL-NEB

REACTIONS (1)
  - Dyspepsia [Not Recovered/Not Resolved]
